FAERS Safety Report 15546444 (Version 1)
Quarter: 2018Q4

REPORT INFORMATION
  Report Type: Spontaneous
  Country: GB (occurrence: GB)
  Receive Date: 20181024
  Receipt Date: 20181024
  Transmission Date: 20190205
  Serious: Yes (Disabling, Congenital Anomaly)
  Sender: FDA-Public Use
  Company Number: GB-ASTRAZENECA-2018SF36196

PATIENT

DRUGS (1)
  1. QUETIAPINE FUMARATE. [Suspect]
     Active Substance: QUETIAPINE FUMARATE
     Indication: AFFECTIVE DISORDER
     Dosage: FLUCTUATED BETWEEN 350MG AND 450MG AT NIGHT.
     Route: 064
     Dates: start: 20170725, end: 20180613

REACTIONS (2)
  - Foetal exposure during pregnancy [Unknown]
  - Amniotic band syndrome [Not Recovered/Not Resolved]

NARRATIVE: CASE EVENT DATE: 201711
